FAERS Safety Report 17773173 (Version 1)
Quarter: 2020Q2

REPORT INFORMATION
  Report Type: Report from Study
  Country: DE (occurrence: DE)
  Receive Date: 20200513
  Receipt Date: 20200513
  Transmission Date: 20200714
  Serious: Yes (Death, Other)
  Sender: FDA-Public Use
  Company Number: DE-AMGEN-DEUNI2020075243

PATIENT
  Age: 67 Year
  Sex: Female

DRUGS (10)
  1. ETANERCEPT [Suspect]
     Active Substance: ETANERCEPT
     Indication: PRODUCT USED FOR UNKNOWN INDICATION
     Dosage: 50 MILLIGRAM, SINGLE
     Route: 065
     Dates: start: 20111115, end: 20111213
  2. HUMIRA [Suspect]
     Active Substance: ADALIMUMAB
     Indication: PRODUCT USED FOR UNKNOWN INDICATION
     Dosage: 40 MG
     Route: 065
     Dates: start: 20110726, end: 20111115
  3. BETATENE [Concomitant]
     Dosage: UNK
     Route: 062
     Dates: start: 201904, end: 201908
  4. CICLOSPORIN [Concomitant]
     Active Substance: CYCLOSPORINE
     Dosage: UNK
     Route: 062
     Dates: start: 201906, end: 201908
  5. TREMFYA [Suspect]
     Active Substance: GUSELKUMAB
     Indication: PSORIATIC ARTHROPATHY
     Dosage: UNK UNK, UNK
     Route: 065
  6. COSENTYX [Suspect]
     Active Substance: SECUKINUMAB
     Indication: PRODUCT USED FOR UNKNOWN INDICATION
     Dosage: 300 MG
     Route: 065
     Dates: start: 201510, end: 201605
  7. TREMFYA [Suspect]
     Active Substance: GUSELKUMAB
     Indication: PSORIASIS
     Dosage: 100 MG
     Route: 058
     Dates: start: 20190206, end: 201908
  8. TREMFYA [Suspect]
     Active Substance: GUSELKUMAB
     Dosage: UNK, UNK
     Route: 065
  9. TALTZ [Suspect]
     Active Substance: IXEKIZUMAB
     Indication: PRODUCT USED FOR UNKNOWN INDICATION
     Dosage: 80 MG
     Route: 065
     Dates: start: 20170322, end: 201901
  10. STELARA [Suspect]
     Active Substance: USTEKINUMAB
     Indication: PRODUCT USED FOR UNKNOWN INDICATION
     Dosage: 45 MG
     Route: 065
     Dates: start: 20111220, end: 201508

REACTIONS (1)
  - Death [Fatal]

NARRATIVE: CASE EVENT DATE: 20190815
